FAERS Safety Report 8590179-2 (Version None)
Quarter: 2012Q3

REPORT INFORMATION
  Report Type: 
  Country: None (occurrence: None)
  Receive Date: 20120813
  Receipt Date: 20120803
  Transmission Date: 20120928
  Serious: Yes (Other)
  Sender: FDA-Public Use
  Company Number: HU-UCBSA-063145

PATIENT
  Age: 63 Year
  Sex: Female

DRUGS (5)
  1. MITELASE [Concomitant]
     Dosage: UNKNOWN DOSE
     Dates: start: 19800101
  2. ARAVA [Concomitant]
     Dosage: UNKNOWN DOSE
     Dates: start: 20111205
  3. CIMZIA [Suspect]
     Dosage: DOSE:400 MG
     Dates: start: 20120423, end: 20120521
  4. SULFASALAZINE [Concomitant]
     Dosage: UNKNOWN DOSE
     Dates: start: 20080101
  5. ENALAPRIL MALEATE [Concomitant]
     Dosage: UNKNOWN DOSE
     Dates: start: 20030101

REACTIONS (3)
  - GENERAL PHYSICAL HEALTH DETERIORATION [None]
  - ARTHRITIS [None]
  - INJECTION SITE ERYTHEMA [None]
